FAERS Safety Report 22100690 (Version 1)
Quarter: 2023Q1

REPORT INFORMATION
  Report Type: Report from Study
  Country: US (occurrence: US)
  Receive Date: 20230316
  Receipt Date: 20230316
  Transmission Date: 20230418
  Serious: Yes (Hospitalization)
  Sender: FDA-Public Use
  Company Number: US-ABBVIE-4341555

PATIENT
  Sex: Female

DRUGS (1)
  1. RINVOQ [Suspect]
     Active Substance: UPADACITINIB
     Indication: Psoriatic arthropathy
     Route: 048
     Dates: start: 20230115

REACTIONS (5)
  - Dermal cyst [Recovered/Resolved]
  - Exostosis [Unknown]
  - Swelling [Unknown]
  - Staphylococcal infection [Unknown]
  - Pain [Unknown]
